FAERS Safety Report 9202836 (Version 3)
Quarter: 2013Q2

REPORT INFORMATION
  Report Type: Spontaneous
  Country: US (occurrence: US)
  Receive Date: 20130401
  Receipt Date: 20130503
  Transmission Date: 20140414
  Serious: Yes (Death, Hospitalization)
  Sender: FDA-Public Use
  Company Number: US-009507513-1303USA014284

PATIENT
  Age: 80 Year
  Sex: Male

DRUGS (5)
  1. JANUMET [Suspect]
     Indication: TYPE 2 DIABETES MELLITUS
     Dosage: 1000MG/50MG, BID
     Route: 048
     Dates: start: 20080903, end: 20090325
  2. JANUVIA [Suspect]
     Indication: TYPE 2 DIABETES MELLITUS
     Dosage: 25 MG, QD
     Route: 048
     Dates: start: 20090325, end: 20110818
  3. PRANDIN (DEFLAZACORT) [Concomitant]
  4. HUMALOG [Concomitant]
  5. ACTOS [Concomitant]

REACTIONS (3)
  - Pancreatic carcinoma [Fatal]
  - Weight decreased [Unknown]
  - Drug ineffective [Unknown]
